FAERS Safety Report 7513316-7 (Version None)
Quarter: 2011Q2

REPORT INFORMATION
  Report Type: 
  Country: None (occurrence: None)
  Receive Date: 20110525
  Receipt Date: 20110525
  Transmission Date: 20111010
  Serious: Yes (Hospitalization)
  Sender: FDA-Public Use
  Company Number: None

PATIENT
  Sex: Male
  Weight: 56.6996 kg

DRUGS (3)
  1. ROBAXIN [Suspect]
     Dosage: TWICE A DAY AM-ONCE PM-ONCE EVERY 12 HRS. END OF AUGUST 2010
  2. NAPROXEN [Suspect]
     Indication: CHEST PAIN
     Dosage: TWICE A DAY AM-ONCE PM-ONCE EVERY 12 HRS BEGINNING OF AUGUST 2010
  3. DIFLUNISAL [Suspect]

REACTIONS (9)
  - MALAISE [None]
  - ABDOMINAL DISCOMFORT [None]
  - ABDOMINAL PAIN UPPER [None]
  - DIARRHOEA [None]
  - VISION BLURRED [None]
  - HAEMATOCHEZIA [None]
  - ULCER [None]
  - FAECES DISCOLOURED [None]
  - GASTRIC HAEMORRHAGE [None]
